FAERS Safety Report 16778608 (Version 1)
Quarter: 2019Q3

REPORT INFORMATION
  Report Type: Spontaneous
  Country: NL (occurrence: NL)
  Receive Date: 20190906
  Receipt Date: 20190906
  Transmission Date: 20191005
  Serious: Yes (Death, Other)
  Sender: FDA-Public Use
  Company Number: NL-SUN PHARMACEUTICAL INDUSTRIES LTD-2019RR-220007

PATIENT
  Age: 53 Year
  Sex: Female

DRUGS (1)
  1. GEMCITABINE. [Suspect]
     Active Substance: GEMCITABINE
     Indication: PRODUCT USED FOR UNKNOWN INDICATION
     Dosage: 1250 MG/M2, ON DAYS 1 AND 8 IN EACH 3-WEEK CYCLE

REACTIONS (19)
  - Hypertension [Fatal]
  - Blood lactate dehydrogenase increased [Fatal]
  - Haemolytic anaemia [Fatal]
  - Haemorrhagic cerebral infarction [Unknown]
  - Pyrexia [Fatal]
  - Nystagmus [Fatal]
  - Somnolence [Fatal]
  - Jaundice [Fatal]
  - Haemorrhage [Unknown]
  - Hypercalcaemia [Fatal]
  - Thrombotic microangiopathy [Fatal]
  - Renal tubular necrosis [Fatal]
  - Shock [Unknown]
  - Vision blurred [Fatal]
  - Hemiparesis [Fatal]
  - Hepatic necrosis [Fatal]
  - Hepatic enzyme abnormal [Fatal]
  - Gait disturbance [Fatal]
  - Hyperbilirubinaemia [Fatal]
